FAERS Safety Report 20337410 (Version 4)
Quarter: 2025Q1

REPORT INFORMATION
  Report Type: Spontaneous
  Country: US (occurrence: US)
  Receive Date: 20220114
  Receipt Date: 20250301
  Transmission Date: 20250409
  Serious: No
  Sender: SANOFI AVENTIS
  Company Number: US-SA-SAC20220106000797

PATIENT
  Age: 48 Year
  Sex: Male
  Weight: 97.506 kg

DRUGS (2)
  1. CEREZYME [Suspect]
     Active Substance: IMIGLUCERASE
     Indication: Gaucher^s disease
     Dosage: 5200 IU, QOW
     Route: 042
     Dates: start: 201201
  2. CERDELGA [Suspect]
     Active Substance: ELIGLUSTAT
     Indication: Gaucher^s disease
     Dosage: 84 MG, BID
     Route: 048
     Dates: start: 202203

REACTIONS (7)
  - Infusion site pain [Unknown]
  - Scar [Unknown]
  - Infusion site swelling [Unknown]
  - Infusion site rash [Unknown]
  - Infusion site bruising [Unknown]
  - Hypersensitivity [Unknown]
  - Weight increased [Unknown]
